FAERS Safety Report 18039096 (Version 2)
Quarter: 2020Q3

REPORT INFORMATION
  Report Type: Spontaneous
  Country: AT (occurrence: AT)
  Receive Date: 20200717
  Receipt Date: 20200826
  Transmission Date: 20201103
  Serious: No
  Sender: FDA-Public Use
  Company Number: AT-SA-2020SA178570

PATIENT

DRUGS (1)
  1. DUPIXENT [Suspect]
     Active Substance: DUPILUMAB
     Indication: RENAL CELL CARCINOMA
     Dosage: 300 MG
     Route: 065

REACTIONS (1)
  - Off label use [Unknown]
